FAERS Safety Report 19870981 (Version 1)
Quarter: 2021Q3

REPORT INFORMATION
  Report Type: Spontaneous
  Country: US (occurrence: US)
  Receive Date: 20210922
  Receipt Date: 20210922
  Transmission Date: 20211014
  Serious: No
  Sender: FDA-Public Use
  Company Number: None

PATIENT
  Age: 49 Year
  Sex: Female
  Weight: 101.25 kg

DRUGS (6)
  1. RYBELSUS [Suspect]
     Active Substance: SEMAGLUTIDE
     Indication: GLYCOSYLATED HAEMOGLOBIN INCREASED
     Dosage: ?          QUANTITY:1 TABLET(S);?
     Route: 048
     Dates: start: 20210817
  2. ATORVASTATIN [Concomitant]
     Active Substance: ATORVASTATIN
  3. 81 MG ASPIRIN [Concomitant]
     Active Substance: ASPIRIN
  4. VITAMIN D [Concomitant]
     Active Substance: VITAMIN D NOS
  5. TRINTELLIX [Concomitant]
     Active Substance: VORTIOXETINE HYDROBROMIDE
  6. DILTIAZEM. [Concomitant]
     Active Substance: DILTIAZEM

REACTIONS (1)
  - Vomiting [None]

NARRATIVE: CASE EVENT DATE: 20210920
